FAERS Safety Report 4616260-8 (Version None)
Quarter: 2005Q1

REPORT INFORMATION
  Report Type: 
  Country: None (occurrence: None)
  Receive Date: 20050321
  Receipt Date: 20050307
  Transmission Date: 20050727
  Serious: Yes (Hospitalization)
  Sender: FDA-Public Use
  Company Number: 2005BI005225

PATIENT
  Age: 62 Year
  Sex: Female
  Weight: 62.5964 kg

DRUGS (8)
  1. AVONEX [Suspect]
     Indication: MULTIPLE SCLEROSIS
     Dosage: 30 UG; QW; IM
     Route: 030
     Dates: start: 20041101, end: 20050201
  2. HYDROCHLOROTHIAZIDE [Concomitant]
  3. POTASSIUM CHLORIDE [Concomitant]
  4. VITAMIN E [Concomitant]
  5. ASPIRIN [Concomitant]
  6. VALIUM [Concomitant]
  7. NAPROXEN [Concomitant]
  8. CARDIZEM [Concomitant]

REACTIONS (6)
  - ANXIETY [None]
  - ARTHRALGIA [None]
  - HEART RATE INCREASED [None]
  - HYPERTENSION [None]
  - PAIN IN EXTREMITY [None]
  - SUICIDAL IDEATION [None]
